APPROVED DRUG PRODUCT: EVEROLIMUS
Active Ingredient: EVEROLIMUS
Strength: 1MG
Dosage Form/Route: TABLET;ORAL
Application: A206133 | Product #004 | TE Code: AB
Applicant: HIKMA PHARMACEUTICALS USA INC
Approved: Nov 18, 2021 | RLD: No | RS: No | Type: RX